FAERS Safety Report 23251666 (Version 2)
Quarter: 2023Q4

REPORT INFORMATION
  Report Type: Report from Study
  Country: NL (occurrence: NL)
  Receive Date: 20231201
  Receipt Date: 20231201
  Transmission Date: 20240109
  Serious: Yes (Death, Other)
  Sender: FDA-Public Use
  Company Number: NL-VER-202300090

PATIENT
  Sex: Male

DRUGS (3)
  1. TRIPTORELIN PAMOATE [Suspect]
     Active Substance: TRIPTORELIN PAMOATE
     Indication: Prostate cancer
     Dosage: ??1.00 X PER 6 MONTHS ;
     Route: 030
     Dates: start: 20221201, end: 20221201
  2. TRIPTORELIN PAMOATE [Suspect]
     Active Substance: TRIPTORELIN PAMOATE
     Indication: Prostate cancer
     Dosage: ??1.00 X PER 6 MONTHS; ZINR: 15533212
     Route: 030
     Dates: start: 20230605, end: 20230605
  3. TRIPTORELIN PAMOATE [Suspect]
     Active Substance: TRIPTORELIN PAMOATE
     Indication: Prostate cancer
     Dosage: ??1.00 X PER 6 MONTHS; ZINR: 15533212
     Route: 030
     Dates: start: 20220530, end: 20220530

REACTIONS (1)
  - Death [Fatal]
